FAERS Safety Report 20919324 (Version 1)
Quarter: 2022Q2

REPORT INFORMATION
  Report Type: Spontaneous
  Country: US (occurrence: None)
  Receive Date: 20220603
  Receipt Date: 20220603
  Transmission Date: 20220720
  Serious: No
  Sender: FDA-Public Use
  Company Number: None

PATIENT
  Sex: Female

DRUGS (1)
  1. GABAPENTIN [Suspect]
     Active Substance: GABAPENTIN

REACTIONS (12)
  - Vision blurred [None]
  - Headache [None]
  - Muscle spasms [None]
  - Balance disorder [None]
  - Fatigue [None]
  - Magnetic resonance imaging abnormal [None]
  - Hypoaesthesia [None]
  - Paraesthesia [None]
  - Arthropathy [None]
  - Depression [None]
  - Attention deficit hyperactivity disorder [None]
  - Cerebral disorder [None]
